FAERS Safety Report 5126222-2 (Version None)
Quarter: 2006Q3

REPORT INFORMATION
  Report Type: 
  Country: None (occurrence: None)
  Receive Date: 20060824
  Receipt Date: 20060509
  Transmission Date: 20061208
  Serious: Yes (Disabling, Other)
  Sender: FDA-Public Use
  Company Number: WAES 0604USA00600

PATIENT
  Age: 48 Year
  Sex: Male

DRUGS (4)
  1. VYTORIN [Suspect]
     Dosage: PO
     Route: 048
     Dates: end: 20050901
  2. CYMBALTA [Concomitant]
  3. PRINZIDE [Concomitant]
  4. TESTOSTERONE [Concomitant]

REACTIONS (3)
  - HEPATIC ENZYME INCREASED [None]
  - MYALGIA [None]
  - NON-CARDIAC CHEST PAIN [None]
